FAERS Safety Report 4443563-2 (Version None)
Quarter: 2004Q3

REPORT INFORMATION
  Report Type: 
  Country: None (occurrence: None)
  Receive Date: 20040908
  Receipt Date: 20040901
  Transmission Date: 20050211
  Serious: Yes (Hospitalization)
  Sender: FDA-Public Use
  Company Number: US-MERCK-0409USA00218

PATIENT
  Age: 45 Year
  Sex: Male

DRUGS (2)
  1. DARVOCET-N 100 [Concomitant]
     Route: 065
  2. ZOCOR [Suspect]
     Indication: BLOOD CHOLESTEROL INCREASED
     Route: 048

REACTIONS (3)
  - CHEST PAIN [None]
  - DEAFNESS [None]
  - DYSPNOEA [None]
